FAERS Safety Report 7582573-3 (Version None)
Quarter: 2011Q2

REPORT INFORMATION
  Report Type: 
  Country: None (occurrence: None)
  Receive Date: 20110630
  Receipt Date: 20110621
  Transmission Date: 20111010
  Serious: Yes (Hospitalization, Other)
  Sender: FDA-Public Use
  Company Number: FR-ASTELLAS-2011EU000061

PATIENT
  Sex: Female
  Weight: 47 kg

DRUGS (6)
  1. RAMIPRIL [Concomitant]
     Indication: HYPERTENSION
     Dosage: 1 DF, UNKNOWN/D
     Route: 048
     Dates: start: 20000101
  2. ACTONEL [Concomitant]
     Indication: OSTEOPOROSIS
     Dosage: 1 DF, UNKNOWN/D
     Route: 048
     Dates: start: 20050101
  3. VESICARE [Suspect]
     Indication: MICTURITION URGENCY
     Dosage: 1 DF, UID/QD
     Route: 065
     Dates: start: 20101126, end: 20101208
  4. SIMVASTATIN [Concomitant]
     Indication: HYPERCHOLESTEROLAEMIA
     Dosage: 1 DF, UNKNOWN/D
     Route: 048
     Dates: start: 20000101
  5. ASPIRIN [Concomitant]
     Indication: ANTICOAGULANT THERAPY
     Dosage: 1 DF, UNKNOWN/D
     Route: 048
     Dates: start: 20000101
  6. PAROXETINE HCL [Concomitant]
     Indication: DEPRESSION
     Dosage: 1 DF, UNKNOWN/D
     Route: 048
     Dates: start: 20000101

REACTIONS (4)
  - ABNORMAL BEHAVIOUR [None]
  - CONFUSIONAL STATE [None]
  - DELIRIUM [None]
  - HALLUCINATION [None]
